FAERS Safety Report 4722298-2 (Version None)
Quarter: 2005Q3

REPORT INFORMATION
  Report Type: 
  Country: None (occurrence: None)
  Receive Date: 20050722
  Receipt Date: 20041015
  Transmission Date: 20060218
  Serious: No
  Sender: FDA-Public Use
  Company Number: US-GLAXOSMITHKLINE-A0530047A

PATIENT
  Age: 65 Year
  Sex: Male

DRUGS (7)
  1. AVANDIA [Suspect]
     Dosage: 4MG TWICE PER DAY
     Route: 048
  2. PLAVIX [Concomitant]
  3. LISINOPRIL [Concomitant]
  4. OXYCODONE HCL [Concomitant]
  5. PROTONIX [Concomitant]
  6. ASPIRIN [Concomitant]
  7. PROSCAR [Concomitant]

REACTIONS (1)
  - HEADACHE [None]
